FAERS Safety Report 25684378 (Version 1)
Quarter: 2025Q3

REPORT INFORMATION
  Report Type: Spontaneous
  Country: MA (occurrence: MA)
  Receive Date: 20250815
  Receipt Date: 20250815
  Transmission Date: 20251020
  Serious: Yes (Life-Threatening, Other)
  Sender: ASTELLAS
  Company Number: MA-ASTELLAS-2025-AER-044864

PATIENT
  Sex: Male

DRUGS (3)
  1. ENZALUTAMIDE [Suspect]
     Active Substance: ENZALUTAMIDE
     Indication: Hormone-refractory prostate cancer
     Route: 065
  2. TALAZOPARIB [Suspect]
     Active Substance: TALAZOPARIB
     Indication: Hormone-refractory prostate cancer
     Route: 065
  3. TALAZOPARIB [Suspect]
     Active Substance: TALAZOPARIB
     Route: 065

REACTIONS (1)
  - Pancytopenia [Recovered/Resolved]
